FAERS Safety Report 8914332 (Version 1)
Quarter: 2012Q4

REPORT INFORMATION
  Report Type: 
  Country: TR (occurrence: TR)
  Receive Date: 20121118
  Receipt Date: 20121118
  Transmission Date: 20130627
  Serious: No
  Sender: FDA-Public Use
  Company Number: TR-MYLANLABS-2012S1023103

PATIENT
  Age: 30 Year
  Sex: Female

DRUGS (3)
  1. FLUTICASONE PROPIONATE [Suspect]
     Indication: ASTHMA
     Route: 055
  2. MIRTAZAPINE [Interacting]
     Indication: DEPRESSION
     Dosage: 30 mg/d
     Route: 048
  3. PAROXETINE [Interacting]
     Indication: DEPRESSION
     Dosage: 20 mg/d
     Route: 048

REACTIONS (2)
  - Cushing^s syndrome [Recovering/Resolving]
  - Drug interaction [Recovered/Resolved]
